FAERS Safety Report 9107224 (Version 1)
Quarter: 2013Q1

REPORT INFORMATION
  Report Type: Spontaneous
  Country: US (occurrence: US)
  Receive Date: 20130221
  Receipt Date: 20130221
  Transmission Date: 20140127
  Serious: Yes (Death, Hospitalization, Other)
  Sender: FDA-Public Use
  Company Number: US-ABBOTT-13P-163-1051600-00

PATIENT
  Age: 52 None
  Sex: Male

DRUGS (7)
  1. LUPRON DEPOT [Suspect]
     Indication: PRODUCT USED FOR UNKNOWN INDICATION
     Dates: start: 20101206, end: 201103
  2. VICODIN [Suspect]
     Indication: PAIN
  3. AROMASIN [Suspect]
     Indication: BREAST CANCER
     Route: 048
     Dates: start: 20120919, end: 20121015
  4. LASIX [Concomitant]
     Indication: PRODUCT USED FOR UNKNOWN INDICATION
     Dosage: 20MG DAILY
  5. COMPAZINE [Concomitant]
     Indication: NAUSEA
     Dosage: EVERY 6 HOURS AS NEEDED
  6. SYMBICORT [Concomitant]
     Indication: PRODUCT USED FOR UNKNOWN INDICATION
     Dosage: 160/4.5
  7. TUSSIONEX [Concomitant]
     Indication: COUGH

REACTIONS (11)
  - Breast cancer [Unknown]
  - Back pain [Unknown]
  - Febrile neutropenia [Unknown]
  - Pleural effusion [Unknown]
  - Dyspnoea [Unknown]
  - Dry skin [Unknown]
  - Dyspnoea [Unknown]
  - Drug effect incomplete [Unknown]
  - Decreased appetite [Unknown]
  - Vitamin D deficiency [Unknown]
  - Drug effect delayed [Unknown]
